FAERS Safety Report 13739056 (Version 1)
Quarter: 2017Q3

REPORT INFORMATION
  Report Type: Spontaneous
  Country: US (occurrence: US)
  Receive Date: 20170710
  Receipt Date: 20170710
  Transmission Date: 20171127
  Serious: Yes (Other)
  Sender: FDA-Public Use
  Company Number: US-SAOL THERAPEUTICS-2017SAO00322

PATIENT
  Age: 59 Year
  Sex: Female

DRUGS (6)
  1. SUFENTANIL [Suspect]
     Active Substance: SUFENTANIL
     Dosage: 3.78 ?G, \DAY
     Route: 037
  2. COMPOUNDED BACLOFEN [Suspect]
     Active Substance: BACLOFEN
     Indication: POST LAMINECTOMY SYNDROME
     Dosage: 87.51 ?G, \DAY
     Route: 037
  3. BUPIVACAINE. [Suspect]
     Active Substance: BUPIVACAINE
     Dosage: 0.126 MG, \DAY
  4. COMPOUNDED BACLOFEN [Suspect]
     Active Substance: BACLOFEN
     Indication: SPINAL PAIN
     Dosage: 2.21 ?G, \DAY
     Route: 037
  5. BUPIVACAINE. [Suspect]
     Active Substance: BUPIVACAINE
     Dosage: 5 MG, \DAY
     Route: 037
  6. SUFENTANIL [Suspect]
     Active Substance: SUFENTANIL
     Dosage: 150.02 ?G, \DAY
     Route: 037

REACTIONS (6)
  - Gait disturbance [Unknown]
  - Off label use [Unknown]
  - Pain [Recovered/Resolved]
  - Chills [Unknown]
  - Drug withdrawal syndrome [Unknown]
  - Device failure [Recovered/Resolved]

NARRATIVE: CASE EVENT DATE: 20170208
